FAERS Safety Report 22600273 (Version 1)
Quarter: 2023Q2

REPORT INFORMATION
  Report Type: Spontaneous
  Country: TH (occurrence: TH)
  Receive Date: 20230614
  Receipt Date: 20230614
  Transmission Date: 20230721
  Serious: Yes (Other)
  Sender: FDA-Public Use
  Company Number: TH-PFIZER INC-PV202300080895

PATIENT
  Age: 78 Year
  Sex: Female
  Weight: 39.7 kg

DRUGS (1)
  1. SUTENT [Suspect]
     Active Substance: SUNITINIB MALATE
     Indication: Gastrointestinal stromal tumour
     Dosage: 37.5 MG, CYCLIC (ONCE DAILY FOR 2 WEEKS ON AND 1 WEEK OFF)
     Route: 048
     Dates: start: 20230501

REACTIONS (12)
  - Abscess limb [Recovered/Resolved]
  - Haematocrit decreased [Recovering/Resolving]
  - Neutrophil count decreased [Recovering/Resolving]
  - Pain [Recovering/Resolving]
  - Blood potassium decreased [Unknown]
  - Glomerular filtration rate decreased [Unknown]
  - Mean platelet volume increased [Unknown]
  - Platelet count decreased [Unknown]
  - Red cell distribution width increased [Unknown]
  - Haemoglobin decreased [Unknown]
  - Red blood cell count decreased [Unknown]
  - White blood cell count decreased [Unknown]

NARRATIVE: CASE EVENT DATE: 20230508
